FAERS Safety Report 7399568-5 (Version None)
Quarter: 2011Q2

REPORT INFORMATION
  Report Type: 
  Country: None (occurrence: None)
  Receive Date: 20110407
  Receipt Date: 20110314
  Transmission Date: 20111010
  Serious: Yes (Hospitalization, Other)
  Sender: FDA-Public Use
  Company Number: US-BAYER-201023026NA

PATIENT
  Sex: Female
  Weight: 190 kg

DRUGS (19)
  1. METHSCOPOLAMINE BROMIDE [Concomitant]
     Dosage: UNK
     Dates: start: 20081228
  2. ALEVE-D SINUS + COLD [Concomitant]
     Dosage: UNK
     Dates: start: 20050101
  3. YAZ [Suspect]
  4. OCELLA [Suspect]
  5. XANAX [Concomitant]
     Indication: MIGRAINE
     Dosage: UNK
     Dates: start: 20090301
  6. YASMIN [Suspect]
     Indication: ACNE
  7. ANTIBIOTICS [Concomitant]
     Indication: SINUSITIS
     Dosage: UNK
     Dates: start: 20000101
  8. YASMIN [Suspect]
     Indication: CONTRACEPTION
     Route: 048
     Dates: start: 20050101
  9. PROMETHAZINE [Concomitant]
     Dosage: UNK
     Dates: start: 20090128
  10. UNCODEABLE ^UNCLASSIFIABLE^ [Concomitant]
     Indication: MIGRAINE
     Dosage: UNK
     Dates: start: 20070101
  11. LEVONORGESTREL + ETHINYL ESTRADIOL [Concomitant]
  12. PROTONIX [Concomitant]
     Dosage: UNK
     Dates: start: 20081201
  13. AZITHROMYCIN [Concomitant]
     Dosage: UNK
     Dates: start: 20090212
  14. HYDROCODONE BITARTRATE AND ACETAMINOPHEN [Concomitant]
     Dosage: UNK
     Dates: start: 20090213
  15. EPINEPHRINE [Concomitant]
     Indication: MIGRAINE
     Dosage: UNK
     Dates: start: 20070101
  16. ADVIL LIQUI-GELS [Concomitant]
     Dosage: UNK
     Dates: start: 20050101
  17. YASMIN [Suspect]
     Indication: PREMENSTRUAL SYNDROME
  18. UNCODEABLE ^UNCLASSIFIABLE^ [Concomitant]
     Dosage: UNK
     Dates: start: 20081228
  19. NEXIUM [Concomitant]
     Dosage: UNK

REACTIONS (13)
  - NAUSEA [None]
  - HIATUS HERNIA [None]
  - DEHYDRATION [None]
  - DUODENAL ULCER [None]
  - IRRITABLE BOWEL SYNDROME [None]
  - DIARRHOEA [None]
  - ABDOMINAL PAIN [None]
  - CHOLECYSTITIS CHRONIC [None]
  - HAEMATOCHEZIA [None]
  - GASTRITIS [None]
  - GASTROOESOPHAGEAL REFLUX DISEASE [None]
  - CHOLELITHIASIS [None]
  - VOMITING [None]
